FAERS Safety Report 8132481-4 (Version None)
Quarter: 2012Q1

REPORT INFORMATION
  Report Type: 
  Country: None (occurrence: None)
  Receive Date: 20120103
  Receipt Date: 20110917
  Transmission Date: 20120608
  Serious: No
  Sender: FDA-Public Use
  Company Number: AE-2011-001647

PATIENT
  Age: 65 Year
  Sex: Female
  Weight: 79.3795 kg

DRUGS (3)
  1. INCIVEK [Suspect]
     Dosage: (3 IN 1 D)
     Dates: start: 20110915
  2. PEGINTERFERON (PEGINTERFERON ALFA-2A) [Concomitant]
  3. RIBAVIRIN [Concomitant]

REACTIONS (2)
  - RASH [None]
  - FATIGUE [None]
